FAERS Safety Report 25129916 (Version 6)
Quarter: 2025Q2

REPORT INFORMATION
  Report Type: Spontaneous
  Country: US (occurrence: US)
  Receive Date: 20250327
  Receipt Date: 20250520
  Transmission Date: 20250717
  Serious: Yes (Death, Hospitalization, Other)
  Sender: UNITED THERAPEUTICS
  Company Number: US-UNITED THERAPEUTICS-UNT-2024-035550

PATIENT
  Sex: Female

DRUGS (10)
  1. TYVASO [Suspect]
     Active Substance: TREPROSTINIL
     Indication: Pulmonary arterial hypertension
     Dosage: 18 ?G, QID
     Dates: start: 20241106, end: 20241107
  2. TYVASO [Suspect]
     Active Substance: TREPROSTINIL
     Dosage: 6 ?G, QID
     Dates: start: 20241107, end: 2024
  3. TYVASO [Suspect]
     Active Substance: TREPROSTINIL
     Dosage: 12 ?G, QID
     Dates: start: 2024, end: 2024
  4. TYVASO [Suspect]
     Active Substance: TREPROSTINIL
     Dosage: 12 ?G, BID
     Dates: start: 2024, end: 2024
  5. TYVASO [Suspect]
     Active Substance: TREPROSTINIL
     Dosage: 12 ?G, QID
     Dates: start: 2024
  6. TYVASO [Suspect]
     Active Substance: TREPROSTINIL
     Dosage: 12 ?G, TID
  7. TYVASO [Suspect]
     Active Substance: TREPROSTINIL
     Dosage: 12 ?G, BID
  8. OFEV [Suspect]
     Active Substance: NINTEDANIB
     Indication: Idiopathic pulmonary fibrosis
     Dosage: 150 MG, BID
     Dates: start: 202202
  9. OXYGEN [Concomitant]
     Active Substance: OXYGEN
     Indication: Dyspnoea
  10. OXYGEN [Concomitant]
     Active Substance: OXYGEN
     Indication: Dyspnoea exertional

REACTIONS (31)
  - Death [Fatal]
  - Dyspnoea at rest [Unknown]
  - Bendopnoea [Unknown]
  - Dyspnoea [Unknown]
  - Condition aggravated [Unknown]
  - Cough [Not Recovered/Not Resolved]
  - Headache [Unknown]
  - Dizziness [Unknown]
  - Diarrhoea [Unknown]
  - Oedema peripheral [Unknown]
  - Productive cough [Unknown]
  - Dyspnoea exertional [Unknown]
  - Chest pain [Unknown]
  - Blood pressure increased [Recovered/Resolved]
  - Dizziness postural [Unknown]
  - Decreased appetite [Unknown]
  - Vomiting [Unknown]
  - Nausea [Unknown]
  - Hypertension [Unknown]
  - Localised oedema [Unknown]
  - Sputum discoloured [Unknown]
  - Fatigue [Not Recovered/Not Resolved]
  - Peripheral swelling [Not Recovered/Not Resolved]
  - Weight fluctuation [Not Recovered/Not Resolved]
  - Throat tightness [Unknown]
  - Flushing [Unknown]
  - Hypotension [Unknown]
  - Pain in jaw [Unknown]
  - Pain in extremity [Unknown]
  - Throat irritation [Unknown]
  - Off label use [Unknown]

NARRATIVE: CASE EVENT DATE: 20240101
